FAERS Safety Report 7607937-0 (Version None)
Quarter: 2011Q3

REPORT INFORMATION
  Report Type: 
  Country: None (occurrence: None)
  Receive Date: 20110714
  Receipt Date: 20110705
  Transmission Date: 20111222
  Serious: Yes (Life-Threatening, Hospitalization, Other)
  Sender: FDA-Public Use
  Company Number: US-BAYER-201029965NA

PATIENT
  Age: 30 Year
  Sex: Female
  Weight: 117.91 kg

DRUGS (10)
  1. PHENERGAN HCL [Concomitant]
     Dosage: UNK
     Dates: start: 20070723
  2. LACTAID [Concomitant]
  3. AZITHROMYCIN [Concomitant]
     Dosage: 500 MG, UNK
     Dates: start: 20070523
  4. LORTAB [Concomitant]
     Dosage: UNK
     Dates: start: 20070723
  5. YASMIN [Suspect]
     Dosage: UNK UNK, QD
     Route: 048
     Dates: start: 20040101, end: 20080101
  6. LEXAPRO [Concomitant]
     Dosage: 10 MG, UNK
     Dates: start: 20060515, end: 20070416
  7. HYDROCODONE [Concomitant]
     Dosage: UNK
     Dates: start: 20070724
  8. DROSPIRENONE AND ETHINYL ESTRADIOL [Suspect]
     Dosage: UNK UNK, QD
     Route: 048
     Dates: start: 20080101, end: 20100101
  9. VITAMIN B-12 [Concomitant]
  10. ZITHROMAX [Concomitant]

REACTIONS (5)
  - CHOLELITHIASIS [None]
  - CHOLECYSTITIS CHRONIC [None]
  - INJURY [None]
  - CHOLECYSTITIS ACUTE [None]
  - GALLBLADDER NON-FUNCTIONING [None]
